FAERS Safety Report 4851306-3 (Version None)
Quarter: 2005Q4

REPORT INFORMATION
  Report Type: 
  Country: None (occurrence: None)
  Receive Date: 20051208
  Receipt Date: 20051124
  Transmission Date: 20060501
  Serious: Yes (Other)
  Sender: FDA-Public Use
  Company Number: S05-CAN-05629-01

PATIENT
  Age: 43 Year
  Sex: Male

DRUGS (1)
  1. CELEXA [Suspect]
     Dosage: 50 MG QD PO
     Route: 048

REACTIONS (5)
  - ALANINE AMINOTRANSFERASE INCREASED [None]
  - BLOOD CREATINE PHOSPHOKINASE INCREASED [None]
  - BLOOD UREA INCREASED [None]
  - MYALGIA [None]
  - MYOPATHY [None]
